FAERS Safety Report 25434466 (Version 2)
Quarter: 2025Q2

REPORT INFORMATION
  Report Type: Spontaneous
  Country: US (occurrence: US)
  Receive Date: 20250613
  Receipt Date: 20250618
  Transmission Date: 20250716
  Serious: No
  Sender: AMGEN
  Company Number: US-AMGEN-USASP2025114926

PATIENT

DRUGS (2)
  1. REPATHA [Suspect]
     Active Substance: EVOLOCUMAB
     Indication: Blood cholesterol increased
     Dosage: 140 MILLIGRAM, Q2WK
     Route: 065
  2. TYLENOL [Concomitant]
     Active Substance: ACETAMINOPHEN

REACTIONS (14)
  - Brain fog [Not Recovered/Not Resolved]
  - Feeling abnormal [Unknown]
  - Facial pain [Unknown]
  - Pain [Unknown]
  - Ear congestion [Not Recovered/Not Resolved]
  - Asthenia [Unknown]
  - Vertigo [Unknown]
  - Therapy interrupted [Unknown]
  - Dizziness [Not Recovered/Not Resolved]
  - Fatigue [Recovered/Resolved]
  - Influenza like illness [Unknown]
  - Headache [Not Recovered/Not Resolved]
  - Myalgia [Recovering/Resolving]
  - Back pain [Unknown]
